FAERS Safety Report 7204792-8 (Version None)
Quarter: 2010Q4

REPORT INFORMATION
  Report Type: 
  Country: None (occurrence: None)
  Receive Date: 20101230
  Receipt Date: 20101220
  Transmission Date: 20110411
  Serious: No
  Sender: FDA-Public Use
  Company Number: US-PFIZER INC-2010176486

PATIENT
  Sex: Male
  Weight: 97.522 kg

DRUGS (4)
  1. AZITHROMYCIN [Suspect]
     Indication: NASOPHARYNGITIS
     Dosage: 500 MG, 1X/DAY, THEN 250MG DAILLYX 4 DAYS
     Dates: start: 20101215
  2. AZITHROMYCIN [Suspect]
  3. AZITHROMYCIN [Suspect]
     Dosage: UNK
  4. IOPHEN-C [Concomitant]
     Dates: start: 20101201

REACTIONS (2)
  - MEDICATION ERROR [None]
  - NASOPHARYNGITIS [None]
